FAERS Safety Report 14375143 (Version 1)
Quarter: 2018Q1

REPORT INFORMATION
  Report Type: Spontaneous
  Country: US (occurrence: US)
  Receive Date: 20180110
  Receipt Date: 20180110
  Transmission Date: 20180509
  Serious: No
  Sender: FDA-Public Use
  Company Number: None

PATIENT
  Age: 56 Year
  Sex: Female

DRUGS (1)
  1. TACROLIMUS CAP 0.5MG [Suspect]
     Active Substance: TACROLIMUS

REACTIONS (4)
  - Diarrhoea [None]
  - Cellulitis [None]
  - Graft versus host disease [None]
  - Diabetes mellitus [None]

NARRATIVE: CASE EVENT DATE: 20180110
